FAERS Safety Report 10554852 (Version 4)
Quarter: 2015Q1

REPORT INFORMATION
  Report Type: Report from Study
  Country: JP (occurrence: JP)
  Receive Date: 20141030
  Receipt Date: 20150213
  Transmission Date: 20150720
  Serious: Yes (Life-Threatening, Hospitalization, Other)
  Sender: FDA-Public Use
  Company Number: JP-009507513-1410JPN015651

PATIENT
  Age: 21 Day
  Sex: Male

DRUGS (7)
  1. DIAZOXIDE CAPSULES 25 MG ^MSD^ [Suspect]
     Active Substance: DIAZOXIDE
     Indication: HYPOGLYCAEMIA
     Dosage: 2.5 MG, BID
     Route: 048
     Dates: start: 20140610, end: 20140617
  2. SODIUM CHLORIDE. [Concomitant]
     Active Substance: SODIUM CHLORIDE
     Indication: HYPONATRAEMIA
     Dosage: 0.3 G, DIVIDED DOSE FREQUENCY UNKNOWN, FROMULATION: POR
     Route: 048
     Dates: start: 20140606, end: 20140805
  3. EPOETIN ALFA [Concomitant]
     Active Substance: ERYTHROPOIETIN
     Indication: ANAEMIA NEONATAL
     Dosage: DOSE INCREASED BY WEIGHT, DAILY DOSE UNKNOWN, DOSE 0.3 UNIT: UNDER 1000 UNIT
     Route: 058
     Dates: start: 20140609, end: 20140807
  4. PANVITAN [Concomitant]
     Indication: PROPHYLAXIS
     Dosage: 0.3 G, QD DIVIDED DOSE FREQUENCY UNKNOWN
     Route: 048
     Dates: start: 20140606, end: 20140804
  5. APNECUT [Concomitant]
     Indication: APNOEA NEONATAL
     Dosage: 0.4 ML, DIVIDED DOSE FREQUENCY UNKNOWN, FORMULATION; POR
     Route: 048
     Dates: start: 20140610, end: 20140718
  6. DIAZOXIDE CAPSULES 25 MG ^MSD^ [Suspect]
     Active Substance: DIAZOXIDE
     Dosage: 1.25 MG, BID
     Route: 048
     Dates: start: 20140618, end: 20140619
  7. ALFAROL [Concomitant]
     Active Substance: ALFACALCIDOL
     Indication: PROPHYLAXIS
     Dosage: 0.05MICROGRAM, QD, DIVIDED DOSE FREQUENCY UNKNOWN
     Route: 048
     Dates: start: 20140606, end: 20140804

REACTIONS (3)
  - Blood pressure decreased [Recovered/Resolved]
  - Oliguria [Recovered/Resolved]
  - Oedema [Recovered/Resolved]

NARRATIVE: CASE EVENT DATE: 20140617
